APPROVED DRUG PRODUCT: HYDROCHLOROTHIAZIDE
Active Ingredient: HYDROCHLOROTHIAZIDE
Strength: 50MG
Dosage Form/Route: TABLET;ORAL
Application: A040810 | Product #002
Applicant: SUN PHARMACEUTICAL INDUSTRIES INC
Approved: Mar 27, 2007 | RLD: No | RS: No | Type: DISCN